FAERS Safety Report 15594725 (Version 2)
Quarter: 2018Q4

REPORT INFORMATION
  Report Type: Spontaneous
  Country: US (occurrence: US)
  Receive Date: 20181107
  Receipt Date: 20181228
  Transmission Date: 20190205
  Serious: Yes (Other)
  Sender: FDA-Public Use
  Company Number: US-BIOVERATIV-2018BV000756

PATIENT
  Age: 38 Year
  Sex: Male

DRUGS (2)
  1. ALPROLIX [Suspect]
     Active Substance: EFTRENONACOG ALFA
     Indication: FACTOR XI DEFICIENCY
     Dosage: 4900 IU, QW
     Route: 042
  2. ALPROLIX [Suspect]
     Active Substance: EFTRENONACOG ALFA
     Dosage: TAKEN AS NEEDED TO RESOLVE BLEEDS
     Route: 042

REACTIONS (2)
  - Haemarthrosis [Recovered/Resolved]
  - Haemorrhage [Recovered/Resolved]

NARRATIVE: CASE EVENT DATE: 2018
